FAERS Safety Report 23434054 (Version 1)
Quarter: 2024Q1

REPORT INFORMATION
  Report Type: Spontaneous
  Country: NO (occurrence: NO)
  Receive Date: 20240123
  Receipt Date: 20240123
  Transmission Date: 20240410
  Serious: Yes (Other)
  Sender: FDA-Public Use
  Company Number: None

PATIENT
  Age: 9 Decade
  Sex: Female

DRUGS (2)
  1. PAXLOVID [Suspect]
     Active Substance: NIRMATRELVIR\RITONAVIR
     Indication: COVID-19 treatment
     Dosage: UNK
     Route: 048
     Dates: start: 20231123, end: 20231125
  2. RAMIPRIL [Concomitant]
     Active Substance: RAMIPRIL
     Indication: Cardiac failure
     Dosage: UNK

REACTIONS (4)
  - Syncope [Recovered/Resolved]
  - Hypotension [Recovered/Resolved]
  - Diarrhoea [Recovered/Resolved]
  - Dehydration [Recovering/Resolving]

NARRATIVE: CASE EVENT DATE: 20231125
